FAERS Safety Report 8601002 (Version 2)
Quarter: 2013Q1

REPORT INFORMATION
  Report Type: Report from Study
  Country: CA (occurrence: CA)
  Receive Date: 20120606
  Receipt Date: 20130321
  Transmission Date: 20140127
  Serious: Yes (Death, Other)
  Sender: FDA-Public Use
  Company Number: CA-ROCHE-1071972

PATIENT
  Sex: 0

DRUGS (2)
  1. BEVACIZUMAB [Suspect]
     Indication: HEPATIC CANCER
     Dosage: DAY 1, 15
     Route: 042
  2. TEMSIROLIMUS [Suspect]
     Indication: HEPATIC CANCER
     Dosage: DAY 1, 8, 15, 22
     Route: 042

REACTIONS (12)
  - Death [Fatal]
  - Thrombocytopenia [Unknown]
  - Neutropenia [Unknown]
  - Leukopenia [Unknown]
  - Fatigue [Unknown]
  - Anaemia [Unknown]
  - Mucosal inflammation [Unknown]
  - Dyspnoea [Unknown]
  - Diarrhoea [Unknown]
  - Haemorrhage [Unknown]
  - Fistula [Unknown]
  - Infection [Unknown]
